FAERS Safety Report 9290404 (Version 2)
Quarter: 2013Q2

REPORT INFORMATION
  Report Type: Spontaneous
  Country: US (occurrence: US)
  Receive Date: 20130515
  Receipt Date: 20130625
  Transmission Date: 20140414
  Serious: No
  Sender: FDA-Public Use
  Company Number: US-PFIZER INC-2013146902

PATIENT
  Age: 57 Year
  Sex: Female
  Weight: 90.7 kg

DRUGS (3)
  1. ACCUPRIL [Suspect]
     Indication: HYPERTENSION
     Dosage: 20 MG, 2X/DAY
  2. COREG [Concomitant]
     Dosage: 25 MG, DAILY
  3. EXFORGE [Concomitant]
     Dosage: [10 MG AMLODIPINE]/[320 MG VALSARTAN], 1X/DAY

REACTIONS (2)
  - Influenza like illness [Recovered/Resolved]
  - Cough [Recovered/Resolved]
